FAERS Safety Report 9704469 (Version 1)
Quarter: 2013Q4

REPORT INFORMATION
  Report Type: Spontaneous
  Country: DE (occurrence: DE)
  Receive Date: 20131122
  Receipt Date: 20131122
  Transmission Date: 20140711
  Serious: Yes (Disabling)
  Sender: FDA-Public Use
  Company Number: DE-NAPPMUNDI-DEU-2013-0012841

PATIENT
  Age: 84 Year
  Sex: Female

DRUGS (2)
  1. OXYGESIC [Suspect]
     Indication: BACK PAIN
     Dosage: 10 MG, BID
     Route: 048
     Dates: start: 20130212
  2. OXYGESIC [Suspect]
     Dosage: UNK
     Route: 048
     Dates: start: 201211

REACTIONS (4)
  - Hypoacusis [Not Recovered/Not Resolved]
  - Hypoaesthesia [Not Recovered/Not Resolved]
  - Feeling abnormal [Not Recovered/Not Resolved]
  - Hypoaesthesia [Not Recovered/Not Resolved]
